FAERS Safety Report 5571882-5 (Version None)
Quarter: 2007Q4

REPORT INFORMATION
  Report Type: 
  Country: None (occurrence: None)
  Receive Date: 20071219
  Receipt Date: 20071213
  Transmission Date: 20080405
  Serious: Yes (Other)
  Sender: FDA-Public Use
  Company Number: SPV1-2007-05208

PATIENT
  Age: 51 Year
  Sex: Male
  Weight: 124.5 kg

DRUGS (7)
  1. FOSRENOL [Suspect]
     Indication: HYPERPHOSPHATAEMIA
     Dosage: 1000 MG, 3X/DAY;TID, ORAL
     Route: 048
     Dates: start: 20071201, end: 20071210
  2. TOPRO XL (METOPROLOL SUCCINATE) [Concomitant]
  3. MINOXIDIL [Concomitant]
  4. AVAPRO [Concomitant]
  5. INSULIN LANTUS (INSULIN GLARGINE) [Concomitant]
  6. HUMALOG /00030501/ (INSULIN) [Concomitant]
  7. CLONIDINE [Concomitant]

REACTIONS (3)
  - DIARRHOEA [None]
  - GASTROOESOPHAGEAL REFLUX DISEASE [None]
  - SUICIDAL IDEATION [None]
